FAERS Safety Report 8883121 (Version 1)
Quarter: 2012Q4

REPORT INFORMATION
  Report Type: 
  Country: US (occurrence: US)
  Receive Date: 20121103
  Receipt Date: 20121103
  Transmission Date: 20130627
  Serious: No
  Sender: FDA-Public Use
  Company Number: US-ASTRAZENECA-2012SE80438

PATIENT
  Age: 68 Year
  Sex: Female

DRUGS (2)
  1. NEXIUM [Suspect]
     Route: 048
  2. BLOOD PRESSURE MEDICINE [Suspect]
     Route: 065

REACTIONS (3)
  - Colitis [Unknown]
  - Malaise [Unknown]
  - Dizziness [Unknown]
